FAERS Safety Report 8027727-7 (Version None)
Quarter: 2012Q1

REPORT INFORMATION
  Report Type: 
  Country: None (occurrence: None)
  Receive Date: 20120106
  Receipt Date: 20120103
  Transmission Date: 20120608
  Serious: Yes (Death, Hospitalization)
  Sender: FDA-Public Use
  Company Number: US-GILEAD-2011-0042090

PATIENT
  Sex: Female

DRUGS (1)
  1. LETAIRIS [Suspect]
     Indication: PULMONARY HYPERTENSION
     Route: 048
     Dates: start: 20110705

REACTIONS (5)
  - COR PULMONALE [None]
  - UNEVALUABLE EVENT [None]
  - PULMONARY ARTERIAL HYPERTENSION [None]
  - SEPSIS [None]
  - OEDEMA [None]
